FAERS Safety Report 24072268 (Version 1)
Quarter: 2024Q3

REPORT INFORMATION
  Report Type: Spontaneous
  Country: IT (occurrence: IT)
  Receive Date: 20240710
  Receipt Date: 20240710
  Transmission Date: 20241017
  Serious: Yes (Hospitalization, Other)
  Sender: BRISTOL MYERS SQUIBB
  Company Number: None

PATIENT
  Age: 78 Year
  Sex: Female

DRUGS (9)
  1. ELIQUIS [Interacting]
     Active Substance: APIXABAN
     Indication: Atrial fibrillation
  2. ELIQUIS [Interacting]
     Active Substance: APIXABAN
     Route: 048
     Dates: start: 20240416, end: 20240416
  3. ENOXAPARIN [Interacting]
     Active Substance: ENOXAPARIN
     Indication: Product used for unknown indication
     Dosage: 4,000 IU: 1 VIAL UNDER THE SKIN
     Route: 058
  4. EZETIMIBE\ROSUVASTATIN CALCIUM [Concomitant]
     Active Substance: EZETIMIBE\ROSUVASTATIN CALCIUM
     Indication: Hypercholesterolaemia
     Route: 048
  5. ACETAMINOPHEN [Concomitant]
     Active Substance: ACETAMINOPHEN
     Indication: Pain
     Dosage: 1 G IF PAIN, MAXIMUM EVERY 8 HOURS
  6. BISOPROLOL [Concomitant]
     Active Substance: BISOPROLOL\BISOPROLOL FUMARATE
     Indication: Product used for unknown indication
     Route: 048
  7. FOSINOPRIL SODIUM\HYDROCHLOROTHIAZIDE [Concomitant]
     Active Substance: FOSINOPRIL SODIUM\HYDROCHLOROTHIAZIDE
     Indication: Hypertension
     Dosage: 20MG + 12.5 MG: 1 CP H 8
     Route: 048
  8. METFORMIN HYDROCHLORIDE [Concomitant]
     Active Substance: METFORMIN HYDROCHLORIDE
     Indication: Type 2 diabetes mellitus
     Route: 048
  9. ALLOPURINOL [Concomitant]
     Active Substance: ALLOPURINOL
     Indication: Product used for unknown indication
     Route: 048

REACTIONS (5)
  - Cerebral haemorrhage [Recovering/Resolving]
  - Vasogenic cerebral oedema [Unknown]
  - Central nervous system lymphoma [Unknown]
  - Off label use [Unknown]
  - Drug interaction [Unknown]

NARRATIVE: CASE EVENT DATE: 20240417
